FAERS Safety Report 12662887 (Version 2)
Quarter: 2016Q3

REPORT INFORMATION
  Report Type: Report from Study
  Country: US (occurrence: US)
  Receive Date: 20160818
  Receipt Date: 20160922
  Transmission Date: 20161109
  Serious: Yes (Other)
  Sender: FDA-Public Use
  Company Number: US-009507513-1608USA008450

PATIENT
  Sex: Male

DRUGS (44)
  1. COUMADIN [Concomitant]
     Active Substance: WARFARIN SODIUM
  2. FAMOTIDINE. [Concomitant]
     Active Substance: FAMOTIDINE
  3. MEDROL [Concomitant]
     Active Substance: METHYLPREDNISOLONE
  4. DEXAMETHASONE. [Concomitant]
     Active Substance: DEXAMETHASONE
  5. WARFARIN [Concomitant]
     Active Substance: WARFARIN
  6. DUONEB [Concomitant]
     Active Substance: ALBUTEROL SULFATE\IPRATROPIUM BROMIDE
  7. PALONOSETRON HYDROCHLORIDE. [Concomitant]
     Active Substance: PALONOSETRON HYDROCHLORIDE
  8. OMEPRAZOLE. [Concomitant]
     Active Substance: OMEPRAZOLE
  9. PROCHLORPERAZINE MALEATE. [Concomitant]
     Active Substance: PROCHLORPERAZINE MALEATE
  10. FLONASE [Concomitant]
     Active Substance: FLUTICASONE PROPIONATE
  11. LEVAQUIN [Concomitant]
     Active Substance: LEVOFLOXACIN
  12. PLAVIX [Concomitant]
     Active Substance: CLOPIDOGREL BISULFATE
  13. PERCOCET [Concomitant]
     Active Substance: ACETAMINOPHEN\OXYCODONE HYDROCHLORIDE
  14. COZAAR [Concomitant]
     Active Substance: LOSARTAN POTASSIUM
  15. TOPROL XL [Concomitant]
     Active Substance: METOPROLOL SUCCINATE
  16. BEVACIZUMAB [Concomitant]
     Active Substance: BEVACIZUMAB
  17. CYANOCOBALAMIN. [Concomitant]
     Active Substance: CYANOCOBALAMIN
  18. ZOCOR [Concomitant]
     Active Substance: SIMVASTATIN
  19. PROVENTIL [Suspect]
     Active Substance: ALBUTEROL
     Indication: RESPIRATORY DISORDER
     Dosage: UNK
     Route: 048
  20. AMIODARONE HYDROCHLORIDE. [Concomitant]
     Active Substance: AMIODARONE HYDROCHLORIDE
  21. ASPIR-81 [Concomitant]
     Active Substance: ASPIRIN
  22. AUGMENTIN [Concomitant]
     Active Substance: AMOXICILLIN\CLAVULANATE POTASSIUM
  23. DIPHENHYDRAMINE. [Concomitant]
     Active Substance: DIPHENHYDRAMINE
  24. NIASPAN [Concomitant]
     Active Substance: NIACIN
  25. CARBOXYMETHYLCELLULOSE SODIUM. [Concomitant]
     Active Substance: CARBOXYMETHYLCELLULOSE SODIUM
  26. ISOSORBIDE MONONITRATE. [Concomitant]
     Active Substance: ISOSORBIDE MONONITRATE
  27. ALOXI [Concomitant]
     Active Substance: PALONOSETRON HYDROCHLORIDE
  28. CARBOPLATIN. [Concomitant]
     Active Substance: CARBOPLATIN
  29. PEMETREXED DISODIUM [Concomitant]
     Active Substance: PEMETREXED DISODIUM
  30. METHIMAZOLE. [Concomitant]
     Active Substance: METHIMAZOLE
  31. ALBUTEROL SULFATE. [Concomitant]
     Active Substance: ALBUTEROL SULFATE
  32. ONDANSETRON HYDROCHLORIDE. [Concomitant]
     Active Substance: ONDANSETRON HYDROCHLORIDE
  33. SPIRIVA [Concomitant]
     Active Substance: TIOTROPIUM BROMIDE MONOHYDRATE
  34. AVASTIN (SIMVASTATIN) [Concomitant]
     Active Substance: SIMVASTATIN
  35. FOLIC ACID. [Concomitant]
     Active Substance: FOLIC ACID
  36. INFLUENZA VIRUS VACCINE (UNSPECIFIED) [Concomitant]
     Active Substance: INFLUENZA VIRUS VACCINE
  37. LORAZEPAM. [Concomitant]
     Active Substance: LORAZEPAM
  38. PACLITAXEL. [Concomitant]
     Active Substance: PACLITAXEL
  39. ADVAIR HFA [Concomitant]
     Active Substance: FLUTICASONE PROPIONATE\SALMETEROL XINAFOATE
  40. GABAPENTIN. [Concomitant]
     Active Substance: GABAPENTIN
  41. ATORVASTATIN CALCIUM. [Concomitant]
     Active Substance: ATORVASTATIN CALCIUM
  42. SYMBICORT [Concomitant]
     Active Substance: BUDESONIDE\FORMOTEROL FUMARATE DIHYDRATE
  43. TAPAZOLE [Concomitant]
     Active Substance: METHIMAZOLE
  44. ZITHROMAX [Concomitant]
     Active Substance: AZITHROMYCIN DIHYDRATE

REACTIONS (2)
  - Lung neoplasm malignant [Unknown]
  - Product use issue [Unknown]
